FAERS Safety Report 25970497 (Version 1)
Quarter: 2025Q4

REPORT INFORMATION
  Report Type: Spontaneous
  Country: EU (occurrence: EU)
  Receive Date: 20251028
  Receipt Date: 20251028
  Transmission Date: 20260119
  Serious: Yes (Other)
  Sender: BIOVITRUM
  Company Number: EU-BIOVITRUM-2025-FR-009399

PATIENT
  Age: 57 Year
  Sex: Female
  Weight: 58 kg

DRUGS (1)
  1. ANAKINRA [Suspect]
     Active Substance: ANAKINRA
     Indication: Giant cell arteritis
     Dosage: 100 MG/DAY FOR 16 WEEKS

REACTIONS (14)
  - Injection site pain [Recovered/Resolved]
  - Injection site induration [Recovered/Resolved]
  - Off label use [Recovered/Resolved]
  - Dyspepsia [Recovered/Resolved]
  - Osteoarthritis [Unknown]
  - Insomnia [Recovered/Resolved]
  - Giant cell arteritis [Unknown]
  - Muscle contracture [Recovered/Resolved]
  - Tendon calcification [Recovered/Resolved]
  - Abdominal pain [Recovered/Resolved]
  - Angina pectoris [Recovered/Resolved]
  - Bronchitis [Unknown]
  - Nervousness [Recovered/Resolved]
  - Condition aggravated [Unknown]

NARRATIVE: CASE EVENT DATE: 20210301
